FAERS Safety Report 8354651-2 (Version None)
Quarter: 2012Q2

REPORT INFORMATION
  Report Type: 
  Country: None (occurrence: None)
  Receive Date: 20120511
  Receipt Date: 20120509
  Transmission Date: 20120825
  Serious: Yes (Hospitalization)
  Sender: FDA-Public Use
  Company Number: BE-ABBOTT-12P-013-0910353-00

PATIENT
  Sex: Female

DRUGS (7)
  1. CYANOCOBALAMIN [Concomitant]
     Indication: PRODUCT USED FOR UNKNOWN INDICATION
  2. MEDROL [Concomitant]
     Indication: ARTHRITIS
     Dosage: 8MG-16MG PER DAY, ALTERNATELY
     Dates: start: 20111205
  3. METHOTREXATE [Concomitant]
     Indication: ANKYLOSING SPONDYLITIS
     Dates: start: 20101202, end: 20110825
  4. FOLIC ACID [Concomitant]
     Indication: PRODUCT USED FOR UNKNOWN INDICATION
     Dosage: DAILY
     Dates: start: 20101202
  5. METHOTREXATE [Concomitant]
     Dates: start: 20110825
  6. HUMIRA [Suspect]
     Dates: start: 20111201
  7. HUMIRA [Suspect]
     Indication: ANKYLOSING SPONDYLITIS
     Dates: start: 20100621, end: 20111122

REACTIONS (3)
  - ABDOMINAL ADHESIONS [None]
  - CROHN'S DISEASE [None]
  - GASTROINTESTINAL INFLAMMATION [None]
